FAERS Safety Report 10549626 (Version 1)
Quarter: 2014Q4

REPORT INFORMATION
  Report Type: Spontaneous
  Country: US (occurrence: US)
  Receive Date: 20141028
  Receipt Date: 20141028
  Transmission Date: 20150529
  Serious: Yes (Death, Other)
  Sender: FDA-Public Use
  Company Number: US-PFIZER INC-2014294587

PATIENT
  Age: 41 Year
  Sex: Male

DRUGS (1)
  1. DILANTIN [Suspect]
     Active Substance: PHENYTOIN
     Indication: EPILEPSY
     Dosage: 5 CAPSULES (100 MG  IN MORNING AND 4 CAPSULES AT NIGHT)

REACTIONS (2)
  - Choking [Fatal]
  - Seizure [Unknown]
